FAERS Safety Report 11438224 (Version 1)
Quarter: 2015Q3

REPORT INFORMATION
  Report Type: Spontaneous
  Country: US (occurrence: None)
  Receive Date: 20150828
  Receipt Date: 20150828
  Transmission Date: 20151125
  Serious: Yes (Death)
  Sender: FDA-Public Use
  Company Number: COR_00371_2015

PATIENT
  Age: 19 Year
  Sex: Female

DRUGS (6)
  1. CYCLOPHOSPHAMIDE. [Concomitant]
     Active Substance: CYCLOPHOSPHAMIDE
     Indication: B PRECURSOR TYPE ACUTE LEUKAEMIA
     Dosage: DF
  2. HYDROCORTISONE. [Suspect]
     Active Substance: HYDROCORTISONE
     Indication: B PRECURSOR TYPE ACUTE LEUKAEMIA
     Route: 037
  3. CLORAFABINE [Suspect]
     Active Substance: CLOFARABINE
     Indication: B PRECURSOR TYPE ACUTE LEUKAEMIA
     Dosage: DF
  4. METHOTREXATE [Suspect]
     Active Substance: METHOTREXATE
     Indication: B PRECURSOR TYPE ACUTE LEUKAEMIA
     Route: 037
  5. ETOPOSIDE. [Suspect]
     Active Substance: ETOPOSIDE
     Indication: B PRECURSOR TYPE ACUTE LEUKAEMIA
     Dosage: DF?5 DAYS UNTIL NOT CONTINUING
  6. CYTARABINE. [Suspect]
     Active Substance: CYTARABINE
     Indication: B PRECURSOR TYPE ACUTE LEUKAEMIA
     Route: 037

REACTIONS (13)
  - Alternaria infection [None]
  - Melaena [None]
  - Aspiration [None]
  - Gastrointestinal haemorrhage [None]
  - Fungaemia [None]
  - Sinusitis fungal [None]
  - Respiratory alkalosis [None]
  - Pupil fixed [None]
  - Enterobacter bacteraemia [None]
  - Encephalopathy [None]
  - Continuous haemodiafiltration [None]
  - Haemodialysis [None]
  - Hyperammonaemia [None]
